FAERS Safety Report 7656616-2 (Version None)
Quarter: 2011Q3

REPORT INFORMATION
  Report Type: 
  Country: None (occurrence: None)
  Receive Date: 20110804
  Receipt Date: 20110801
  Transmission Date: 20111222
  Serious: Yes (Death, Hospitalization)
  Sender: FDA-Public Use
  Company Number: CO-PFIZER INC-2011041644

PATIENT
  Age: 6 Month
  Sex: Male

DRUGS (2)
  1. MOTRIN [Suspect]
     Indication: OTITIS MEDIA ACUTE
     Dosage: X 5 DAYS, UNKNOWN
  2. AMOXICILLIN [Concomitant]
     Indication: OTITIS MEDIA ACUTE
     Dosage: UNK

REACTIONS (8)
  - DIARRHOEA HAEMORRHAGIC [None]
  - ILEAL PERFORATION [None]
  - MULTI-ORGAN FAILURE [None]
  - ACUTE RESPIRATORY DISTRESS SYNDROME [None]
  - RESPIRATORY FAILURE [None]
  - SEPTIC SHOCK [None]
  - NECROTISING FASCIITIS [None]
  - PNEUMONIA [None]
